FAERS Safety Report 25298872 (Version 1)
Quarter: 2025Q2

REPORT INFORMATION
  Report Type: Spontaneous
  Country: PL (occurrence: PL)
  Receive Date: 20250512
  Receipt Date: 20250512
  Transmission Date: 20250717
  Serious: Yes (Hospitalization, Other)
  Sender: ACCORD
  Company Number: None

PATIENT
  Age: 6 Month
  Sex: Female

DRUGS (6)
  1. LACOSAMIDE [Suspect]
     Active Substance: LACOSAMIDE
     Indication: Seizure
  2. FENFLURAMINE HYDROCHLORIDE [Suspect]
     Active Substance: FENFLURAMINE HYDROCHLORIDE
     Indication: Severe myoclonic epilepsy of infancy
  3. CLOBAZAM [Concomitant]
     Active Substance: CLOBAZAM
     Indication: Seizure
  4. DIACOMIT [Concomitant]
     Active Substance: STIRIPENTOL
     Indication: Status epilepticus
  5. TOPIRAMATE [Concomitant]
     Active Substance: TOPIRAMATE
     Indication: Seizure
  6. VALPROATE [Concomitant]
     Active Substance: VALPROIC ACID
     Indication: Seizure

REACTIONS (4)
  - Status epilepticus [Recovered/Resolved]
  - COVID-19 [Unknown]
  - Respiratory syncytial virus infection [Unknown]
  - Gait disturbance [Recovered/Resolved]
